FAERS Safety Report 24110443 (Version 1)
Quarter: 2024Q3

REPORT INFORMATION
  Report Type: Spontaneous
  Country: PH (occurrence: PH)
  Receive Date: 20240718
  Receipt Date: 20240718
  Transmission Date: 20241017
  Serious: Yes (Hospitalization)
  Sender: BAYER
  Company Number: PH-BAYER-2024A101907

PATIENT

DRUGS (1)
  1. FINERENONE [Suspect]
     Active Substance: FINERENONE
     Dosage: 10 MG

REACTIONS (3)
  - Asthenia [None]
  - Hyperkalaemia [None]
  - Off label use [None]
